FAERS Safety Report 4421873-2 (Version None)
Quarter: 2004Q3

REPORT INFORMATION
  Report Type: 
  Country: None (occurrence: None)
  Receive Date: 20040806
  Receipt Date: 20040806
  Transmission Date: 20050211
  Serious: Yes (Hospitalization)
  Sender: FDA-Public Use
  Company Number: None

PATIENT
  Age: 74 Year
  Sex: Male

DRUGS (2)
  1. VINCRISTINE [Suspect]
     Indication: CARCINOMA
  2. DAUNORUBICIN [Suspect]
     Indication: CARCINOMA

REACTIONS (1)
  - NEUTROPENIC SEPSIS [None]
